APPROVED DRUG PRODUCT: COSYNTROPIN
Active Ingredient: COSYNTROPIN
Strength: 0.25MG/VIAL
Dosage Form/Route: INJECTABLE;INJECTION
Application: A090574 | Product #001
Applicant: PHARMOBEDIENT CONSULTING LLC
Approved: Dec 17, 2009 | RLD: No | RS: No | Type: DISCN